FAERS Safety Report 4964292-2 (Version None)
Quarter: 2006Q1

REPORT INFORMATION
  Report Type: 
  Country: None (occurrence: None)
  Receive Date: 20060331
  Receipt Date: 20060317
  Transmission Date: 20060701
  Serious: Yes (Death)
  Sender: FDA-Public Use
  Company Number: 2135

PATIENT
  Age: 38 Year
  Sex: Female

DRUGS (5)
  1. AVINZA [Suspect]
     Indication: BACK PAIN
     Dosage: 120 MG DAILY PO
     Route: 048
     Dates: start: 20040728, end: 20040908
  2. AVINZA [Suspect]
     Indication: BACK PAIN
     Dosage: 240 MG DAILY PO
     Route: 048
     Dates: start: 20040908, end: 20040915
  3. CARISOPRODOL [Concomitant]
  4. DIAZEPAM [Concomitant]
  5. OXYCODONE AND ACETAMINOPHEN [Concomitant]

REACTIONS (3)
  - INADEQUATE ANALGESIA [None]
  - INSOMNIA [None]
  - OVERDOSE [None]
